FAERS Safety Report 5658611-1 (Version None)
Quarter: 2008Q1

REPORT INFORMATION
  Report Type: 
  Country: None (occurrence: None)
  Receive Date: 20080310
  Receipt Date: 20070321
  Transmission Date: 20080703
  Serious: No
  Sender: FDA-Public Use
  Company Number: US-BAYER-200710880BCC

PATIENT
  Age: 57 Year
  Sex: Male
  Weight: 104 kg

DRUGS (9)
  1. ALEVE [Suspect]
     Indication: ARTHRITIS
     Dosage: TOTAL DAILY DOSE: 220 MG  UNIT DOSE: 220 MG
     Route: 048
     Dates: start: 20070320
  2. KIRKLAND GLUCOSAMINE CHONDROITIN [Concomitant]
  3. ADVIL [Concomitant]
  4. GABITRIL [Concomitant]
  5. CLONAZEPAM TABS [Concomitant]
  6. LIPITOR [Concomitant]
  7. FLUOXETINE HCL CAPS [Concomitant]
  8. LISINOPRIL [Concomitant]
  9. DEPAKOTE ER TABS [Concomitant]

REACTIONS (4)
  - ABDOMINAL PAIN UPPER [None]
  - DIARRHOEA [None]
  - PYREXIA [None]
  - VOMITING [None]
